FAERS Safety Report 5840792-8 (Version None)
Quarter: 2008Q3

REPORT INFORMATION
  Report Type: 
  Country: None (occurrence: None)
  Receive Date: 20080811
  Receipt Date: 20080730
  Transmission Date: 20090109
  Serious: Yes (Other)
  Sender: FDA-Public Use
  Company Number: GB-PFIZER INC-2008054678

PATIENT
  Sex: Male

DRUGS (2)
  1. CHANTIX [Suspect]
     Indication: SMOKING CESSATION THERAPY
     Route: 048
  2. METHADONE HCL [Concomitant]
     Route: 048

REACTIONS (3)
  - FEELING ABNORMAL [None]
  - MOOD SWINGS [None]
  - TOBACCO USER [None]
